FAERS Safety Report 5270704-X (Version None)
Quarter: 2007Q1

REPORT INFORMATION
  Report Type: 
  Country: None (occurrence: None)
  Receive Date: 20070321
  Receipt Date: 20070309
  Transmission Date: 20070707
  Serious: Yes (Hospitalization, Other)
  Sender: FDA-Public Use
  Company Number: NL-JNJFOC-20070205911

PATIENT
  Sex: Female
  Weight: 85 kg

DRUGS (8)
  1. INFLIXIMAB [Suspect]
     Indication: CROHN'S DISEASE
     Route: 042
  2. AZATHIOPRINE [Concomitant]
     Indication: CROHN'S DISEASE
     Route: 065
  3. NEXIUM [Concomitant]
     Indication: DYSPEPSIA
     Route: 065
  4. SOTALOL HYDROCHLORIDE [Concomitant]
     Indication: THYROID DISORDER
     Route: 065
  5. PULMICORT [Concomitant]
     Indication: CHRONIC OBSTRUCTIVE PULMONARY DISEASE
     Route: 065
  6. ATROVENT [Concomitant]
     Indication: CHRONIC OBSTRUCTIVE PULMONARY DISEASE
     Route: 065
  7. CALCIUM AND VITAMIN D [Concomitant]
  8. ACENOCOUMAROL [Concomitant]

REACTIONS (1)
  - UTERINE CANCER [None]
